FAERS Safety Report 4583252-7 (Version None)
Quarter: 2005Q1

REPORT INFORMATION
  Report Type: 
  Country: None (occurrence: None)
  Receive Date: 20050125
  Receipt Date: 20040816
  Transmission Date: 20050727
  Serious: No
  Sender: FDA-Public Use
  Company Number: USA040670380

PATIENT
  Age: 80 Year
  Sex: Female

DRUGS (3)
  1. FORTEO [Suspect]
     Indication: OSTEOPOROSIS
     Dosage: 20 UG DAY
     Dates: start: 20030601
  2. PREDNISONE [Concomitant]
  3. CALCIUM WITH VITAMIN D [Concomitant]

REACTIONS (4)
  - ABDOMINAL PAIN UPPER [None]
  - BOWEL SOUNDS ABNORMAL [None]
  - FLATULENCE [None]
  - HEADACHE [None]
